FAERS Safety Report 6836302-9 (Version None)
Quarter: 2010Q3

REPORT INFORMATION
  Report Type: 
  Country: None (occurrence: None)
  Receive Date: 20100713
  Receipt Date: 20100701
  Transmission Date: 20110219
  Serious: No
  Sender: FDA-Public Use
  Company Number: KR-PFIZER INC-2010078537

PATIENT
  Sex: Male

DRUGS (1)
  1. VIAGRA [Suspect]
     Indication: ERECTILE DYSFUNCTION
     Dosage: ONCE
     Route: 048
     Dates: start: 20100601, end: 20100601

REACTIONS (1)
  - PYREXIA [None]
